FAERS Safety Report 8893785 (Version 3)
Quarter: 2013Q3

REPORT INFORMATION
  Report Type: Spontaneous
  Country: US (occurrence: US)
  Receive Date: 20121107
  Receipt Date: 20130926
  Transmission Date: 20140515
  Serious: Yes (Other)
  Sender: FDA-Public Use
  Company Number: US-AMGEN-USASP2012030492

PATIENT
  Age: 55 Year
  Sex: Male
  Weight: 82.54 kg

DRUGS (10)
  1. FOLIC ACID [Concomitant]
     Dosage: 20 MG, UNK
  2. ENBREL [Suspect]
     Indication: RHEUMATOID ARTHRITIS
     Dosage: 50 MG, EVERY 7 DAYS
     Route: 058
  3. METHOTREXATE [Suspect]
     Indication: PRODUCT USED FOR UNKNOWN INDICATION
     Dosage: 50 MG/2ML, UNK
     Route: 065
  4. VITAMIN C                          /00008001/ [Concomitant]
     Dosage: 500 MG, TID
  5. FLAXSEED OIL [Concomitant]
     Dosage: UNK
  6. GINGER                             /01646602/ [Concomitant]
     Dosage: 500 MG, UNK
  7. VITAMIN D3 [Concomitant]
     Dosage: 10000 UNIT, UNK
  8. ZINC [Concomitant]
     Dosage: 50 MG, UNK
  9. PREDNISONE [Concomitant]
     Dosage: 1 MG, UNK
  10. TURMERIC                           /01079602/ [Concomitant]
     Dosage: 450 MG, UNK

REACTIONS (5)
  - Meniere^s disease [Unknown]
  - Convulsion [Unknown]
  - Increased tendency to bruise [Unknown]
  - Injection site bruising [Unknown]
  - Injection site pain [Unknown]
